FAERS Safety Report 15183842 (Version 2)
Quarter: 2018Q3

REPORT INFORMATION
  Report Type: Spontaneous
  Country: US (occurrence: US)
  Receive Date: 20180723
  Receipt Date: 20180806
  Transmission Date: 20181010
  Serious: Yes (Life-Threatening, Hospitalization, Other)
  Sender: FDA-Public Use
  Company Number: US-BAYER-2018-134580

PATIENT

DRUGS (7)
  1. PROPOFOL. [Concomitant]
     Active Substance: PROPOFOL
     Route: 064
  2. BETAMETHASONE. [Concomitant]
     Active Substance: BETAMETHASONE
     Route: 064
  3. ACETYLSALICYLIC ACID({=100 MG) [Suspect]
     Active Substance: ASPIRIN
     Route: 064
  4. QUETIAPINE. [Concomitant]
     Active Substance: QUETIAPINE
     Dosage: UNK
     Route: 064
  5. SODIUM BICARBONATE. [Concomitant]
     Active Substance: SODIUM BICARBONATE
     Route: 064
  6. PARACETAMOL [Suspect]
     Active Substance: ACETAMINOPHEN
     Route: 064
  7. PRENATAL VITAMINS [Concomitant]
     Active Substance: VITAMINS
     Route: 064

REACTIONS (10)
  - Respiratory depression [Recovered/Resolved]
  - Blood pH decreased [None]
  - Coagulopathy [Recovered/Resolved]
  - Calcium ionised decreased [Recovered/Resolved]
  - Toxicity to various agents [Recovered/Resolved]
  - Premature baby [None]
  - Analgesic drug level increased [Recovered/Resolved]
  - Blood bicarbonate decreased [Recovered/Resolved]
  - Foetal exposure during pregnancy [Unknown]
  - Low birth weight baby [None]
